FAERS Safety Report 10547803 (Version 2)
Quarter: 2014Q4

REPORT INFORMATION
  Report Type: Spontaneous
  Country: BR (occurrence: BR)
  Receive Date: 20141028
  Receipt Date: 20141217
  Transmission Date: 20150529
  Serious: Yes (Hospitalization, Other)
  Sender: FDA-Public Use
  Company Number: BR-ROCHE-1481142

PATIENT
  Sex: Female
  Weight: 52 kg

DRUGS (7)
  1. OMALIZUMAB [Suspect]
     Active Substance: OMALIZUMAB
     Indication: ASTHMA
     Route: 058
     Dates: start: 20130705, end: 20131025
  2. FORMOTEROL [Concomitant]
     Active Substance: FORMOTEROL
     Route: 065
     Dates: start: 2008
  3. BUDESONIDE. [Concomitant]
     Active Substance: BUDESONIDE
     Route: 065
     Dates: start: 2008
  4. ALDACTONE (BRAZIL) [Concomitant]
  5. MONTELUCAST [Concomitant]
     Route: 065
     Dates: start: 2012
  6. BUDESONIDE. [Concomitant]
     Active Substance: BUDESONIDE
     Route: 065
  7. LOSARTAN [Concomitant]
     Active Substance: LOSARTAN

REACTIONS (3)
  - Hypoglycaemia [Unknown]
  - Cerebrovascular accident [Not Recovered/Not Resolved]
  - Diabetes mellitus [Unknown]
